FAERS Safety Report 8193089-8 (Version None)
Quarter: 2012Q1

REPORT INFORMATION
  Report Type: 
  Country: None (occurrence: None)
  Receive Date: 20120308
  Receipt Date: 20120308
  Transmission Date: 20120608
  Serious: No
  Sender: FDA-Public Use
  Company Number: None

PATIENT
  Age: 37 Year
  Sex: Male
  Weight: 99.79 kg

DRUGS (1)
  1. PROPECIA [Suspect]

REACTIONS (2)
  - ERECTILE DYSFUNCTION [None]
  - QUALITY OF LIFE DECREASED [None]
